FAERS Safety Report 7890130 (Version 3)
Quarter: 2015Q4

REPORT INFORMATION
  Report Type: Spontaneous
  Country: US (occurrence: US)
  Receive Date: 20110407
  Receipt Date: 20151223
  Transmission Date: 20160305
  Serious: Yes (Hospitalization, Other)
  Sender: FDA-Public Use
  Company Number: US-BAYER-2011-029604

PATIENT
  Age: 21 Year
  Sex: Female
  Weight: 58.96 kg

DRUGS (17)
  1. BUPIVACAINE [Concomitant]
     Active Substance: BUPIVACAINE
     Indication: PAIN
     Dosage: UNK
     Route: 042
     Dates: start: 20091029
  2. IBUPROFEN. [Concomitant]
     Active Substance: IBUPROFEN
  3. MORPHINE [Concomitant]
     Active Substance: MORPHINE
     Indication: PAIN
     Dosage: 3 TO 5 MG
     Route: 042
     Dates: start: 20091029
  4. DILAUDID [Concomitant]
     Active Substance: HYDROMORPHONE HYDROCHLORIDE
     Indication: PAIN
     Dosage: 0.5 MG, 2 MG
     Route: 042
     Dates: start: 20091029
  5. YASMIN [Suspect]
     Active Substance: DROSPIRENONE\ETHINYL ESTRADIOL
     Dosage: UNK
     Dates: start: 2005, end: 2006
  6. OCELLA [Suspect]
     Active Substance: DROSPIRENONE\ETHINYL ESTRADIOL
     Indication: PRODUCT USED FOR UNKNOWN INDICATION
     Dosage: UNK
     Dates: start: 200912, end: 201001
  7. IRON [Concomitant]
     Active Substance: IRON
     Indication: ANAEMIA
  8. BUTORPHANOL [Concomitant]
     Active Substance: BUTORPHANOL
     Dosage: 2 MG, UNK
     Route: 042
     Dates: start: 20091029
  9. PROMETHAZINE [Concomitant]
     Active Substance: PROMETHAZINE\PROMETHAZINE HYDROCHLORIDE
     Indication: NAUSEA
     Dosage: 25 MG, UNK
     Dates: start: 20091029
  10. PRENATAL VITAMINS [Concomitant]
     Active Substance: VITAMINS
  11. TERBUTALINE [Concomitant]
     Active Substance: TERBUTALINE
     Dosage: 0.25 MG, UNK
     Route: 058
     Dates: start: 20091029
  12. METOCLOPRAMIDE. [Concomitant]
     Active Substance: METOCLOPRAMIDE
     Dosage: 10 MG, UNK
     Route: 042
     Dates: start: 20091029
  13. OXYTOCIN. [Concomitant]
     Active Substance: OXYTOCIN
     Indication: UTERINE HYPOTONUS
     Dosage: 20 UNITS/1000 ML
     Route: 042
     Dates: start: 20091031
  14. ONDANSETRON [Concomitant]
     Active Substance: ONDANSETRON
     Indication: NAUSEA
     Dosage: 4 MG, UNK
     Route: 042
     Dates: start: 20091029
  15. PERCOCET [Concomitant]
     Active Substance: ACETAMINOPHEN\OXYCODONE HYDROCHLORIDE
     Indication: PAIN
  16. MIDAZOLAM [Concomitant]
     Active Substance: MIDAZOLAM\MIDAZOLAM HYDROCHLORIDE
     Dosage: 0.5 MG, UNK
     Dates: start: 20091029
  17. MEPERIDINE [Concomitant]
     Active Substance: MEPERIDINE
     Indication: PAIN
     Dosage: 12.5 MG, UNK
     Route: 042
     Dates: start: 20091029

REACTIONS (4)
  - Transient ischaemic attack [None]
  - Emotional distress [None]
  - Pain [None]
  - Embolism arterial [None]

NARRATIVE: CASE EVENT DATE: 20100122
